FAERS Safety Report 8553864-4 (Version None)
Quarter: 2012Q3

REPORT INFORMATION
  Report Type: 
  Country: None (occurrence: None)
  Receive Date: 20120731
  Receipt Date: 20120509
  Transmission Date: 20120928
  Serious: No
  Sender: FDA-Public Use
  Company Number: US-009507513-1207USA010416

PATIENT

DRUGS (1)
  1. COPPPERTONE SPORT CLEAR CONTINUOUS SPRAY SUNSCREEN SPF-50 [Suspect]
     Indication: SKIN DEPIGMENTATION
     Dosage: UNK, UNK
     Route: 061
     Dates: start: 20120505

REACTIONS (2)
  - EXPIRED DRUG ADMINISTERED [None]
  - SUNBURN [None]
